FAERS Safety Report 9553063 (Version 2)
Quarter: 2013Q3

REPORT INFORMATION
  Report Type: Spontaneous
  Country: FR (occurrence: FR)
  Receive Date: 20130925
  Receipt Date: 20130925
  Transmission Date: 20140515
  Serious: Yes (Hospitalization)
  Sender: FDA-Public Use
  Company Number: FR-009507513-1308FRA015089

PATIENT
  Age: 65 Year
  Sex: Male
  Weight: 90 kg

DRUGS (5)
  1. ISENTRESS [Suspect]
     Indication: ANTI-INFECTIVE THERAPY
     Dosage: 2 DF, QD
     Route: 048
     Dates: start: 2008, end: 201211
  2. PREZISTA [Suspect]
     Indication: ANTI-INFECTIVE THERAPY
     Dosage: 4 DF, QD
     Dates: start: 2008
  3. CELSENTRI [Suspect]
     Indication: ANTI-INFECTIVE THERAPY
     Dosage: 2 DF, QD
     Dates: start: 2010
  4. TRUVADA [Suspect]
     Indication: ANTI-INFECTIVE THERAPY
     Dosage: 1 DF, QD
     Dates: start: 2008, end: 201304
  5. NORVIR [Concomitant]
     Indication: ANTI-INFECTIVE THERAPY
     Dosage: 2 DF, QD
     Dates: start: 2008

REACTIONS (4)
  - Myalgia [Recovering/Resolving]
  - Hyperparathyroidism secondary [Unknown]
  - Mitochondrial cytopathy [Unknown]
  - Asthenia [Unknown]
